FAERS Safety Report 16609281 (Version 2)
Quarter: 2019Q3

REPORT INFORMATION
  Report Type: Spontaneous
  Country: GR (occurrence: GR)
  Receive Date: 20190722
  Receipt Date: 20190726
  Transmission Date: 20191004
  Serious: Yes (Hospitalization, Other)
  Sender: FDA-Public Use
  Company Number: GR-SA-2019SA192914

PATIENT
  Age: 59 Year
  Sex: Male

DRUGS (2)
  1. GLIMEPIRIDE. [Suspect]
     Active Substance: GLIMEPIRIDE
     Indication: TYPE 2 DIABETES MELLITUS
     Dosage: UNK, UNK
  2. METFORMIN HYDROCHLORIDE. [Suspect]
     Active Substance: METFORMIN HYDROCHLORIDE
     Indication: TYPE 2 DIABETES MELLITUS
     Dosage: UNK

REACTIONS (7)
  - Asthenia [Unknown]
  - Dizziness [Unknown]
  - Vomiting [Unknown]
  - Disease progression [Unknown]
  - Diabetic ketoacidosis [Unknown]
  - Abdominal pain [Unknown]
  - Oliguria [Unknown]
